FAERS Safety Report 26126877 (Version 1)
Quarter: 2025Q4

REPORT INFORMATION
  Report Type: Report from Study
  Country: CO (occurrence: CO)
  Receive Date: 20251205
  Receipt Date: 20251205
  Transmission Date: 20260117
  Serious: Yes (Other)
  Sender: TAKEDA
  Company Number: CO-TAKEDA-2025TUS109641

PATIENT
  Age: 29 Year
  Sex: Male

DRUGS (2)
  1. ANTIHEMOPHILIC FACTOR HUMAN [Suspect]
     Active Substance: ANTIHEMOPHILIC FACTOR HUMAN
     Indication: Factor VIII deficiency
     Dosage: 2000 INTERNATIONAL UNIT
  2. TRANEXAMIC ACID [Suspect]
     Active Substance: TRANEXAMIC ACID
     Indication: Factor VIII deficiency
     Dosage: UNK

REACTIONS (3)
  - Haemorrhage [Unknown]
  - Gingival bleeding [Unknown]
  - Limb injury [Unknown]

NARRATIVE: CASE EVENT DATE: 20250429
